FAERS Safety Report 8909156 (Version 1)
Quarter: 2012Q4

REPORT INFORMATION
  Report Type: 
  Country: US (occurrence: US)
  Receive Date: 20121114
  Receipt Date: 20121114
  Transmission Date: 20130627
  Serious: Yes (Other)
  Sender: FDA-Public Use
  Company Number: US-BAYER-2012-116393

PATIENT
  Age: 21 Year
  Sex: Female

DRUGS (1)
  1. MIRENA [Suspect]
     Indication: CONTRACEPTION
     Dosage: 20 mcg/24hr, CONT
     Route: 015
     Dates: start: 20090512, end: 20100324

REACTIONS (10)
  - Post procedural discomfort [None]
  - Procedural haemorrhage [None]
  - Pelvic pain [None]
  - Uterine perforation [None]
  - Haemorrhage in pregnancy [None]
  - Pregnancy [None]
  - Fear of disease [None]
  - Injury [None]
  - Uterine perforation [None]
  - Endometriosis [None]
